FAERS Safety Report 9099216 (Version 2)
Quarter: 2013Q2

REPORT INFORMATION
  Report Type: Spontaneous
  Country: US (occurrence: US)
  Receive Date: 20130214
  Receipt Date: 20130515
  Transmission Date: 20140414
  Serious: Yes (Death)
  Sender: FDA-Public Use
  Company Number: US-COVIDIEN/TYCO HEALTHCARE/MALLINCKRODT-T201300786

PATIENT
  Age: 80 Year
  Sex: Male

DRUGS (8)
  1. FENTANYL TRANSDERMAL SYSTEM [Suspect]
     Indication: BACK PAIN
     Dosage: 25 MCG/HR Q 3 DAYS
     Route: 062
  2. IRON [Concomitant]
     Indication: ANAEMIA
     Dosage: UNK
     Route: 048
  3. ASA [Concomitant]
     Indication: PROPHYLAXIS
     Dosage: UNK
     Route: 048
  4. NORCO [Concomitant]
     Indication: BREAKTHROUGH PAIN
     Dosage: 10/325, 1 TAB  BID
     Route: 048
  5. LIPITOR [Concomitant]
     Indication: BLOOD CHOLESTEROL INCREASED
     Dosage: QD
     Route: 048
  6. COREG [Concomitant]
     Indication: HYPERTENSION
     Dosage: UNK
     Route: 048
  7. LOPERAMIDE [Concomitant]
     Dosage: UNK
  8. COLACE [Concomitant]
     Dosage: UNK, QD

REACTIONS (4)
  - Pain [Recovered/Resolved]
  - Diarrhoea [Recovered/Resolved]
  - Nausea [Recovered/Resolved]
  - Medication error [Unknown]
